FAERS Safety Report 9228385 (Version 1)
Quarter: 2013Q2

REPORT INFORMATION
  Report Type: Spontaneous
  Country: FR (occurrence: FR)
  Receive Date: 20130412
  Receipt Date: 20130412
  Transmission Date: 20140414
  Serious: Yes (Hospitalization)
  Sender: FDA-Public Use
  Company Number: FR-009507513-1304FRA004012

PATIENT
  Age: 37 Year
  Sex: Male

DRUGS (3)
  1. NORSET [Suspect]
     Indication: DEPRESSION
     Dosage: 15 MG, QPM
     Route: 048
     Dates: start: 20130305, end: 20130318
  2. PROZAC [Suspect]
     Indication: OBSESSIVE-COMPULSIVE DISORDER
     Dosage: 20 MG, QD
     Route: 048
     Dates: start: 20130315, end: 20130318
  3. XANAX [Concomitant]

REACTIONS (1)
  - Suicidal ideation [Recovered/Resolved]
